FAERS Safety Report 4952777-4 (Version None)
Quarter: 2006Q1

REPORT INFORMATION
  Report Type: 
  Country: None (occurrence: None)
  Receive Date: 20060324
  Receipt Date: 20060314
  Transmission Date: 20060701
  Serious: Yes (Other)
  Sender: FDA-Public Use
  Company Number: GB-JNJFOC-20060304775

PATIENT
  Age: 35 Year
  Sex: Male

DRUGS (4)
  1. DOXORUBICIN HCL [Suspect]
     Indication: LYMPHOMA
     Route: 042
  2. VINBLASTINE [Suspect]
     Indication: LYMPHOMA
  3. BLEOMYCIN [Suspect]
     Indication: LYMPHOMA
  4. DACARBAZINE [Suspect]
     Indication: LYMPHOMA

REACTIONS (6)
  - COAGULOPATHY [None]
  - ENCEPHALOPATHY [None]
  - HYPOTHERMIA [None]
  - LIVER FUNCTION TEST ABNORMAL [None]
  - LUNG INFILTRATION [None]
  - MUSCLE SPASTICITY [None]
